FAERS Safety Report 11130185 (Version 2)
Quarter: 2015Q2

REPORT INFORMATION
  Report Type: Spontaneous
  Country: JP (occurrence: JP)
  Receive Date: 20150521
  Receipt Date: 20150609
  Transmission Date: 20150821
  Serious: Yes (Hospitalization, Other)
  Sender: FDA-Public Use
  Company Number: JP-009507513-1504JPN022385

PATIENT
  Age: 71 Year
  Sex: Male
  Weight: 76 kg

DRUGS (10)
  1. EPATAT [Concomitant]
     Dosage: 50 MG, TID
     Route: 048
     Dates: start: 20150305
  2. BIO-THREE [Concomitant]
     Active Substance: HERBALS
     Dosage: 2 DOSE FORM, TID
     Route: 048
     Dates: start: 20150308
  3. FUROSEMIDE. [Concomitant]
     Active Substance: FUROSEMIDE
     Dosage: 40 MG, QD
     Route: 048
  4. CUBICIN [Suspect]
     Active Substance: DAPTOMYCIN
     Indication: STAPHYLOCOCCAL INFECTION
     Dosage: 350 MG, QD
     Route: 041
     Dates: start: 20150305, end: 20150407
  5. ZOSYN [Suspect]
     Active Substance: PIPERACILLIN SODIUM\TAZOBACTAM SODIUM
     Indication: GANGRENE
     Dosage: 4.5 G, TID
     Route: 041
     Dates: start: 20150305, end: 20150407
  6. JANUVIA [Concomitant]
     Active Substance: SITAGLIPTIN PHOSPHATE
     Indication: DIABETES MELLITUS
     Dosage: 50 MG, QD
     Route: 048
     Dates: end: 20150409
  7. MOBIC [Concomitant]
     Active Substance: MELOXICAM
     Dosage: 10 MG, QD
     Route: 048
     Dates: start: 20150305, end: 20150408
  8. METGLUCO [Suspect]
     Active Substance: METFORMIN HYDROCHLORIDE
     Indication: DIABETES MELLITUS
     Dosage: 250 MG, TID
     Route: 048
     Dates: start: 20150325, end: 20150407
  9. SEIBULE [Concomitant]
     Active Substance: MIGLITOL
     Dosage: 75 MG, TID
     Route: 048
     Dates: start: 20150307, end: 20150407
  10. OPALMON [Concomitant]
     Active Substance: LIMAPROST
     Dosage: 10 MICROGRAM, TID
     Route: 048
     Dates: start: 20150305

REACTIONS (5)
  - Acute kidney injury [Not Recovered/Not Resolved]
  - Erythema [Recovering/Resolving]
  - Rash [Recovered/Resolved]
  - Eosinophilic pneumonia [Recovering/Resolving]
  - Diarrhoea [Recovering/Resolving]

NARRATIVE: CASE EVENT DATE: 20150308
